FAERS Safety Report 10794678 (Version 6)
Quarter: 2015Q2

REPORT INFORMATION
  Report Type: Spontaneous
  Country: DE (occurrence: DE)
  Receive Date: 20150213
  Receipt Date: 20150421
  Transmission Date: 20150821
  Serious: Yes (Death, Hospitalization, Other)
  Sender: FDA-Public Use
  Company Number: DE-GILEAD-2015-0136261

PATIENT
  Age: 96 Year
  Sex: Female

DRUGS (9)
  1. NOVALGIN [Suspect]
     Active Substance: METAMIZOLE SODIUM
     Dosage: UNK
     Route: 065
     Dates: end: 201501
  2. SYMBICORT [Concomitant]
     Active Substance: BUDESONIDE\FORMOTEROL FUMARATE DIHYDRATE
     Dosage: 2 DF (160/4.5 MCG/DOSE), QOD
     Route: 055
  3. NITROLINGUAL [Concomitant]
     Active Substance: NITROGLYCERIN
     Dosage: UNK, PRN
     Route: 055
  4. ASPIRIN. [Concomitant]
     Active Substance: ASPIRIN
     Dosage: 100 MG, QD
  5. NOVALGIN [Suspect]
     Active Substance: METAMIZOLE SODIUM
     Indication: ARTHRALGIA
     Dosage: UNK (TOOK MORE IN JAN-2015 THAN BEFORE)
     Route: 065
     Dates: start: 201501
  6. AMOXICILLIN. [Suspect]
     Active Substance: AMOXICILLIN
     Indication: RESPIRATORY TRACT INFECTION
     Dosage: UNK
     Route: 065
     Dates: start: 20150108, end: 201501
  7. RANOLAZINE [Suspect]
     Active Substance: RANOLAZINE
     Indication: PRODUCT USED FOR UNKNOWN INDICATION
     Dosage: 375 MG, BID
     Route: 048
  8. TOREM                              /01036502/ [Concomitant]
     Dosage: 5 MG, QD
  9. MARCUMAR [Concomitant]
     Active Substance: PHENPROCOUMON
     Dosage: (ACCORDING TO INR LEVEL)

REACTIONS (3)
  - Pneumonia [Fatal]
  - Multi-organ failure [Fatal]
  - Thrombotic thrombocytopenic purpura [Fatal]

NARRATIVE: CASE EVENT DATE: 20150130
